FAERS Safety Report 23442691 (Version 1)
Quarter: 2024Q1

REPORT INFORMATION
  Report Type: Spontaneous
  Country: US (occurrence: None)
  Receive Date: 20240124
  Receipt Date: 20240124
  Transmission Date: 20240409
  Serious: Yes (Hospitalization)
  Sender: FDA-Public Use
  Company Number: None

PATIENT
  Sex: Female

DRUGS (1)
  1. OMNITROPE [Suspect]
     Active Substance: SOMATROPIN
     Indication: Short stature
     Dosage: 5MG/1.5ML NIGHTLY UNDER THE SKIN?
     Route: 058

REACTIONS (3)
  - Parainfluenzae virus infection [None]
  - Pseudomonas infection [None]
  - Therapy interrupted [None]
